FAERS Safety Report 5524027-1 (Version None)
Quarter: 2007Q4

REPORT INFORMATION
  Report Type: 
  Country: None (occurrence: None)
  Receive Date: 20071121
  Receipt Date: 20071106
  Transmission Date: 20080405
  Serious: No
  Sender: FDA-Public Use
  Company Number: US-BOEHRINGER INGELHEIM PHARMACEUTICALS, INC.-2007-BP-24029BP

PATIENT
  Age: 69 Year
  Sex: Female

DRUGS (2)
  1. SPIRIVA [Suspect]
     Indication: BRONCHIECTASIS
     Route: 055
     Dates: start: 20070501
  2. SYNTHROID [Concomitant]
     Indication: HYPOTHYROIDISM

REACTIONS (2)
  - BLOOD PRESSURE INCREASED [None]
  - FREQUENT BOWEL MOVEMENTS [None]
